FAERS Safety Report 25249682 (Version 2)
Quarter: 2025Q3

REPORT INFORMATION
  Report Type: Spontaneous
  Country: CN (occurrence: CN)
  Receive Date: 20250429
  Receipt Date: 20250721
  Transmission Date: 20251020
  Serious: Yes (Hospitalization, Other)
  Sender: STRIDES
  Company Number: None

PATIENT
  Age: 48 Year
  Sex: Male

DRUGS (8)
  1. PREDNISOLONE [Suspect]
     Active Substance: PREDNISOLONE
     Indication: Immunosuppressant drug therapy
     Route: 065
     Dates: start: 201610
  2. TACROLIMUS [Suspect]
     Active Substance: TACROLIMUS
     Indication: Immunosuppressant drug therapy
     Route: 065
     Dates: start: 201610
  3. VANCOMYCIN [Suspect]
     Active Substance: VANCOMYCIN
     Indication: Antibiotic therapy
     Route: 048
  4. MYCOPHENOLATE MOFETIL [Suspect]
     Active Substance: MYCOPHENOLATE MOFETIL
     Indication: Immunosuppressant drug therapy
     Route: 065
     Dates: start: 201610
  5. MYCOPHENOLATE MOFETIL [Suspect]
     Active Substance: MYCOPHENOLATE MOFETIL
     Route: 065
     Dates: start: 202405
  6. OSELTAMIVIR [Suspect]
     Active Substance: OSELTAMIVIR
     Indication: Human herpesvirus 6 infection
     Route: 065
  7. OSELTAMIVIR [Suspect]
     Active Substance: OSELTAMIVIR
     Indication: Polyomavirus viraemia
  8. MIZORIBINE [Suspect]
     Active Substance: MIZORIBINE
     Indication: Immunosuppressant drug therapy
     Route: 065
     Dates: start: 202304

REACTIONS (15)
  - Diarrhoea [Unknown]
  - Escherichia urinary tract infection [Unknown]
  - Escherichia sepsis [Recovering/Resolving]
  - Klebsiella sepsis [Unknown]
  - Klebsiella infection [Unknown]
  - Staphylococcal infection [Recovering/Resolving]
  - Enterococcal infection [Recovering/Resolving]
  - Aspergillus infection [Unknown]
  - Polyomavirus viraemia [Recovering/Resolving]
  - Escherichia infection [Recovering/Resolving]
  - Human herpesvirus 6 infection [Recovering/Resolving]
  - Fungal infection [Recovering/Resolving]
  - Drug ineffective [Unknown]
  - Drug ineffective for unapproved indication [Unknown]
  - Off label use [Unknown]

NARRATIVE: CASE EVENT DATE: 20230101
